FAERS Safety Report 9548578 (Version 2)
Quarter: 2013Q4

REPORT INFORMATION
  Report Type: Spontaneous
  Country: US (occurrence: US)
  Receive Date: 20130924
  Receipt Date: 20131022
  Transmission Date: 20140711
  Serious: No
  Sender: FDA-Public Use
  Company Number: US-PFIZER INC-2013272237

PATIENT
  Age: 45 Year
  Sex: Female
  Weight: 86.17 kg

DRUGS (3)
  1. TOVIAZ [Suspect]
     Indication: HYPERTONIC BLADDER
     Dosage: 4 MG, 1X/DAY
     Route: 048
     Dates: start: 20130906, end: 20130920
  2. REBIF [Concomitant]
     Indication: MULTIPLE SCLEROSIS
     Dosage: UNK, 3X/WEEK
  3. MULTIVITAMINS [Concomitant]

REACTIONS (2)
  - Palpitations [Recovered/Resolved]
  - Tachycardia [Recovered/Resolved]
